FAERS Safety Report 5239261-8 (Version None)
Quarter: 2007Q1

REPORT INFORMATION
  Report Type: 
  Country: None (occurrence: None)
  Receive Date: 20061208
  Receipt Date: 20050906
  Transmission Date: 20070707
  Serious: Yes (Other)
  Sender: FDA-Public Use
  Company Number: 2005UW13200

PATIENT
  Age: 49 Year
  Sex: Female
  Weight: 90.718 kg

DRUGS (5)
  1. CRESTOR [Suspect]
     Indication: BLOOD CHOLESTEROL INCREASED
     Dosage: 10 MG PO
     Route: 048
  2. AVANDIA [Concomitant]
  3. METFORMIN HCL [Concomitant]
  4. AMBIEN [Concomitant]
  5. EFFEXOR [Concomitant]

REACTIONS (6)
  - ASTHENIA [None]
  - DIARRHOEA [None]
  - DYSSTASIA [None]
  - MUSCULAR WEAKNESS [None]
  - TINNITUS [None]
  - URINARY INCONTINENCE [None]
